FAERS Safety Report 5759859-8 (Version None)
Quarter: 2008Q2

REPORT INFORMATION
  Report Type: 
  Country: None (occurrence: None)
  Receive Date: 20080605
  Receipt Date: 20080530
  Transmission Date: 20081010
  Serious: Yes (Hospitalization)
  Sender: FDA-Public Use
  Company Number: PHHY2008FR09552

PATIENT
  Sex: Female

DRUGS (2)
  1. ZOMETA [Suspect]
     Indication: HYPERCALCAEMIA
     Dosage: 4 MG
     Route: 042
     Dates: start: 20060302, end: 20061004
  2. CLASTOBAN [Concomitant]
     Indication: HYPERCALCAEMIA
     Dosage: UNK
     Route: 048
     Dates: start: 20060309

REACTIONS (1)
  - OSTEONECROSIS [None]
